FAERS Safety Report 7032606-8 (Version None)
Quarter: 2010Q4

REPORT INFORMATION
  Report Type: 
  Country: None (occurrence: None)
  Receive Date: 20101007
  Receipt Date: 20100927
  Transmission Date: 20110411
  Serious: Yes (Hospitalization)
  Sender: FDA-Public Use
  Company Number: BR-ROCHE-728112

PATIENT
  Sex: Female

DRUGS (3)
  1. MYCOPHENOLATE MOFETIL [Suspect]
     Dosage: THERAPY INTERRUPTED
     Route: 065
     Dates: start: 20060205, end: 20100831
  2. BELATACEPT [Suspect]
     Dosage: THERAPY INTERRUPTED
     Route: 042
     Dates: start: 20060204, end: 20100811
  3. PREDNISONE [Suspect]
     Dosage: THERAPY INTERRUPTED
     Route: 065
     Dates: start: 20060205, end: 20100831

REACTIONS (5)
  - DEEP VEIN THROMBOSIS [None]
  - HYPOGLYCAEMIA [None]
  - MENINGITIS [None]
  - RADICULAR SYNDROME [None]
  - TRANSIENT ISCHAEMIC ATTACK [None]
